FAERS Safety Report 7334136-2 (Version None)
Quarter: 2011Q1

REPORT INFORMATION
  Report Type: 
  Country: None (occurrence: None)
  Receive Date: 20110307
  Receipt Date: 20110222
  Transmission Date: 20110831
  Serious: Yes (Death)
  Sender: FDA-Public Use
  Company Number: US-CELGENEUS-163-21880-10112280

PATIENT
  Sex: Female

DRUGS (3)
  1. ANTIBIOTICS [Concomitant]
     Route: 051
  2. OXYGEN [Concomitant]
     Route: 055
     Dates: start: 20101101
  3. REVLIMID [Suspect]
     Indication: MULTIPLE MYELOMA
     Dosage: 25 MILLIGRAM
     Route: 048
     Dates: start: 20100930, end: 20101114

REACTIONS (2)
  - ISCHAEMIC STROKE [None]
  - ACUTE RESPIRATORY DISTRESS SYNDROME [None]
